FAERS Safety Report 19703508 (Version 1)
Quarter: 2021Q3

REPORT INFORMATION
  Report Type: Other
  Country: US (occurrence: US)
  Receive Date: 20210816
  Receipt Date: 20210816
  Transmission Date: 20211014
  Serious: Yes (Other)
  Sender: FDA-Public Use
  Company Number: US-ROCHE-2888115

PATIENT

DRUGS (2)
  1. RITUXIMAB. [Suspect]
     Active Substance: RITUXIMAB
     Indication: FOLLICULAR LYMPHOMA
     Dosage: FOR 8 DOSES IN CYCLES 1?6
     Route: 041
  2. ZANDELISIB. [Suspect]
     Active Substance: ZANDELISIB
     Indication: FOLLICULAR LYMPHOMA
     Dosage: FOR 8 WEEKS
     Route: 065

REACTIONS (5)
  - Colitis [Unknown]
  - Rash [Unknown]
  - Alanine aminotransferase increased [Unknown]
  - Diarrhoea [Unknown]
  - Aspartate aminotransferase increased [Unknown]
